FAERS Safety Report 7684851-6 (Version None)
Quarter: 2011Q3

REPORT INFORMATION
  Report Type: 
  Country: None (occurrence: None)
  Receive Date: 20110810
  Receipt Date: 20110727
  Transmission Date: 20111222
  Serious: Yes (Hospitalization)
  Sender: FDA-Public Use
  Company Number: AUR-APL-2011-03660

PATIENT
  Age: 54 Year
  Sex: Male

DRUGS (4)
  1. PIPERACILLIN AND TAZOBACTAM [Suspect]
     Indication: CELLULITIS
  2. VANCOMYCIN [Suspect]
     Indication: CELLULITIS
  3. LEVOFLOXACIN [Concomitant]
  4. HEPARIN [Concomitant]

REACTIONS (5)
  - RENAL FAILURE ACUTE [None]
  - RENAL TUBULAR NECROSIS [None]
  - ANTIBODY TEST POSITIVE [None]
  - PETECHIAE [None]
  - THROMBOCYTOPENIA [None]
